FAERS Safety Report 20009439 (Version 1)
Quarter: 2021Q4

REPORT INFORMATION
  Report Type: Spontaneous
  Country: US (occurrence: US)
  Receive Date: 20211028
  Receipt Date: 20211028
  Transmission Date: 20220304
  Serious: Yes (Death)
  Sender: FDA-Public Use
  Company Number: None

PATIENT
  Age: 73 Year
  Sex: Male

DRUGS (3)
  1. CASIRIVIMAB [Suspect]
     Active Substance: CASIRIVIMAB
     Indication: COVID-19
     Dosage: ?          OTHER FREQUENCY:X1;
     Route: 041
     Dates: start: 20211027, end: 20211027
  2. IMDEVIMAB [Suspect]
     Active Substance: IMDEVIMAB
     Indication: SARS-CoV-2 test positive
     Dosage: ?          OTHER FREQUENCY:X1;
     Route: 041
  3. Casirivimab,imdevimab [Concomitant]
     Dates: start: 20211027, end: 20211027

REACTIONS (1)
  - Death [None]

NARRATIVE: CASE EVENT DATE: 20211028
